FAERS Safety Report 9736973 (Version 1)
Quarter: 2013Q4

REPORT INFORMATION
  Report Type: Report from Study
  Country: US (occurrence: US)
  Receive Date: 20131206
  Receipt Date: 20131206
  Transmission Date: 20140711
  Serious: Yes (Life-Threatening, Hospitalization)
  Sender: FDA-Public Use
  Company Number: US-MERCK-1312USA002861

PATIENT
  Age: 43 Year
  Sex: Male
  Weight: 56 kg

DRUGS (7)
  1. VORINOSTAT [Suspect]
     Indication: HAEMATOPOIETIC NEOPLASM
     Dosage: 300 MG ON DAYS 1-5
     Route: 048
     Dates: start: 20131113, end: 20131118
  2. RITUXIMAB [Suspect]
     Indication: HAEMATOPOIETIC NEOPLASM
     Dosage: 375 MG/M2 ON DAY 1
     Route: 042
     Dates: start: 20131113, end: 20131113
  3. ETOPOSIDE [Suspect]
     Indication: HAEMATOPOIETIC NEOPLASM
     Dosage: 50 MG/M2/DAY OVER 96 HOUR ON DAYS 1-4
     Route: 041
     Dates: start: 20131113, end: 20131116
  4. DOXORUBICIN [Suspect]
     Indication: HAEMATOPOIETIC NEOPLASM
     Dosage: 10 MG/M2/DAY OVER 96 HOUR ON DAYS 1-4
     Route: 041
     Dates: start: 20131113, end: 20131116
  5. VINCRISTINE [Suspect]
     Indication: HAEMATOPOIETIC NEOPLASM
     Dosage: 0.4 MG/M2/DAY OVER 96 HOUR ON DAYS 1-4
     Route: 041
     Dates: start: 20131113, end: 20131116
  6. PREDNISONE [Suspect]
     Indication: HAEMATOPOIETIC NEOPLASM
     Dosage: 60 MG/M2/DAY ON DAYS 1-5
     Route: 048
     Dates: start: 20131113, end: 20131117
  7. CYCLOPHOSPHAMIDE [Suspect]
     Indication: HAEMATOPOIETIC NEOPLASM
     Dosage: 375 MG/M2-750 MG/M2 OVER 1 HOUR ON DAY 5
     Route: 042
     Dates: start: 20131117, end: 20131117

REACTIONS (3)
  - Lymphocyte count decreased [Recovering/Resolving]
  - Neutrophil count decreased [Recovering/Resolving]
  - Febrile neutropenia [Recovered/Resolved]
